FAERS Safety Report 17329028 (Version 1)
Quarter: 2020Q1

REPORT INFORMATION
  Report Type: Report from Study
  Country: ES (occurrence: ES)
  Receive Date: 20200127
  Receipt Date: 20200127
  Transmission Date: 20200409
  Serious: Yes (Hospitalization)
  Sender: FDA-Public Use
  Company Number: ES-MYLANLABS-2020M1008739

PATIENT
  Age: 68 Year
  Sex: Female

DRUGS (5)
  1. MORFINA SULFATO [Interacting]
     Active Substance: MORPHINE SULFATE
     Indication: MUSCULOSKELETAL PAIN
     Dosage: 20 MILLIGRAM, TOTAL
     Route: 048
     Dates: start: 20171027, end: 20171027
  2. AMLODIPINO                         /00972401/ [Concomitant]
     Active Substance: AMLODIPINE BESYLATE
     Indication: HYPERTENSION
     Dosage: UNK
     Dates: start: 20121121
  3. MYFORTIC [Concomitant]
     Active Substance: MYCOPHENOLATE SODIUM
     Indication: DERMATOMYOSITIS
     Dosage: UNK
     Dates: start: 20110618
  4. MORFINA SULFATO [Concomitant]
     Active Substance: MORPHINE SULFATE
     Indication: MUSCULOSKELETAL PAIN
     Dosage: 10 MILLIGRAM, QD
     Route: 048
     Dates: start: 20170403, end: 20171026
  5. FENTANILO MATRIX [Suspect]
     Active Substance: FENTANYL
     Indication: MUSCULOSKELETAL PAIN
     Dosage: 41.6 MICROGRAM
     Route: 062
     Dates: start: 20150629

REACTIONS (2)
  - Respiratory depression [Recovered/Resolved]
  - Drug interaction [Unknown]

NARRATIVE: CASE EVENT DATE: 20171027
